FAERS Safety Report 9913120 (Version 3)
Quarter: 2014Q2

REPORT INFORMATION
  Report Type: Report from Study
  Country: CA (occurrence: CA)
  Receive Date: 20140220
  Receipt Date: 20140620
  Transmission Date: 20141212
  Serious: No
  Sender: FDA-Public Use
  Company Number: CA-JNJFOC-20140110468

PATIENT
  Age: 51 Year
  Sex: Female

DRUGS (1)
  1. USTEKINUMAB [Suspect]
     Indication: PSORIASIS
     Route: 058
     Dates: start: 20060918, end: 20131107

REACTIONS (4)
  - Pneumonia [Unknown]
  - Otitis externa [Unknown]
  - Pharyngitis [Unknown]
  - Upper respiratory tract infection [Unknown]
